FAERS Safety Report 5102351-4 (Version None)
Quarter: 2006Q3

REPORT INFORMATION
  Report Type: 
  Country: None (occurrence: None)
  Receive Date: 20060912
  Receipt Date: 20060608
  Transmission Date: 20061208
  Serious: No
  Sender: FDA-Public Use
  Company Number: US-GLAXOSMITHKLINE-A0608384A

PATIENT
  Age: 3 Year
  Sex: Male

DRUGS (2)
  1. FLOVENT [Suspect]
     Indication: DRUG USE FOR UNKNOWN INDICATION
     Dosage: 2PUFF TWICE PER DAY
     Route: 055
     Dates: start: 20050801
  2. NO CONCURRENT MEDICATION [Concomitant]

REACTIONS (2)
  - OFF LABEL USE [None]
  - RASH [None]
